FAERS Safety Report 20206519 (Version 1)
Quarter: 2021Q4

REPORT INFORMATION
  Report Type: Report from Study
  Country: ZA (occurrence: ZA)
  Receive Date: 20211220
  Receipt Date: 20211220
  Transmission Date: 20220303
  Serious: Yes (Other)
  Sender: FDA-Public Use
  Company Number: ZA-NOVARTISPH-NVSC2021ZA284171

PATIENT
  Sex: Female

DRUGS (2)
  1. ENALAPRIL [Suspect]
     Active Substance: ENALAPRIL
     Indication: Hypertension
     Dosage: 5 MG, BID
     Route: 048
  2. SLOW-K [Concomitant]
     Active Substance: POTASSIUM CHLORIDE
     Indication: Hypokalaemia
     Dosage: 2 DOSAGE FORM, BID
     Route: 048

REACTIONS (6)
  - Orthopnoea [Unknown]
  - Peripheral swelling [Unknown]
  - Joint swelling [Unknown]
  - Pulmonary oedema [Unknown]
  - Dyspnoea [Unknown]
  - Fatigue [Unknown]
